FAERS Safety Report 9057794 (Version 1)
Quarter: 2013Q1

REPORT INFORMATION
  Report Type: Spontaneous
  Country: DK (occurrence: None)
  Receive Date: 20130118
  Receipt Date: 20130118
  Transmission Date: 20140127
  Serious: Yes (Hospitalization, Other)
  Sender: FDA-Public Use
  Company Number: 2013MA000446

PATIENT
  Age: 60 Year
  Sex: Female

DRUGS (4)
  1. OXALIPLATIN FOR INJECTION USP 100MG SINGLE-DOSE VIALS (ATLLC) (OXALIPLATIN) [Suspect]
     Indication: CHEMOTHERAPY
     Route: 042
     Dates: start: 20080515, end: 20081002
  2. IRINOTECAN [Concomitant]
  3. FLUOROURACIL [Concomitant]
  4. CALCIUM FOLINATE [Concomitant]

REACTIONS (6)
  - Lower respiratory tract infection [None]
  - Diarrhoea [None]
  - Lethargy [None]
  - Neuropathy peripheral [None]
  - Mucosal inflammation [None]
  - Nausea [None]
